FAERS Safety Report 7081655-2 (Version None)
Quarter: 2010Q4

REPORT INFORMATION
  Report Type: 
  Country: None (occurrence: None)
  Receive Date: 20101103
  Receipt Date: 20101028
  Transmission Date: 20110411
  Serious: Yes (Death, Hospitalization)
  Sender: FDA-Public Use
  Company Number: US-JNJFOC-20050702193

PATIENT
  Sex: Male
  Weight: 64.4 kg

DRUGS (5)
  1. MOTRIN [Suspect]
     Indication: PYREXIA
     Dosage: UNKNOWN
  2. MOTRIN [Suspect]
     Indication: MUSCULOSKELETAL PAIN
     Dosage: UNKNOWN
  3. ACETAMINOPHEN [Suspect]
  4. ACETAMINOPHEN [Suspect]
     Indication: MUSCULOSKELETAL PAIN
  5. ADVIL [Suspect]
     Indication: MUSCULOSKELETAL PAIN

REACTIONS (4)
  - BACTERIAL SEPSIS [None]
  - MULTI-ORGAN FAILURE [None]
  - PNEUMONIA NECROTISING [None]
  - TOXIC EPIDERMAL NECROLYSIS [None]
